FAERS Safety Report 24783456 (Version 1)
Quarter: 2024Q4

REPORT INFORMATION
  Report Type: Spontaneous
  Country: US (occurrence: US)
  Receive Date: 20241227
  Receipt Date: 20241227
  Transmission Date: 20250115
  Serious: No
  Sender: SANOFI AVENTIS
  Company Number: US-SA-2024SA381233

PATIENT
  Sex: Female

DRUGS (2)
  1. CAPRELSA [Suspect]
     Active Substance: VANDETANIB
     Dosage: 300 MG
  2. CAPRELSA [Suspect]
     Active Substance: VANDETANIB
     Dosage: 100 MG

REACTIONS (1)
  - Photosensitivity reaction [Unknown]
